FAERS Safety Report 9148421 (Version 6)
Quarter: 2013Q4

REPORT INFORMATION
  Report Type: Spontaneous
  Country: IE (occurrence: IE)
  Receive Date: 20130308
  Receipt Date: 20131118
  Transmission Date: 20140711
  Serious: Yes (Death, Other)
  Sender: FDA-Public Use
  Company Number: PHFR2013IE001531

PATIENT
  Age: 59 Year
  Sex: Male

DRUGS (2)
  1. CLOZARIL [Suspect]
     Indication: SCHIZOPHRENIA
     Dosage: UNK
     Route: 048
     Dates: start: 20020214
  2. CLOZARIL [Suspect]
     Dosage: 200 MG,
     Dates: start: 20130128

REACTIONS (13)
  - Gastrointestinal carcinoma [Fatal]
  - Metastases to liver [Fatal]
  - Hepatic failure [Fatal]
  - Blood albumin decreased [Fatal]
  - Blood bilirubin increased [Fatal]
  - Blood alkaline phosphatase increased [Fatal]
  - Aspartate aminotransferase increased [Fatal]
  - C-reactive protein increased [Fatal]
  - Chronic obstructive pulmonary disease [Unknown]
  - Intestinal obstruction [Unknown]
  - Malaise [Unknown]
  - White blood cell count increased [Unknown]
  - Neutrophil count increased [Unknown]
